FAERS Safety Report 24758385 (Version 3)
Quarter: 2025Q1

REPORT INFORMATION
  Report Type: Report from Study
  Country: GB (occurrence: GB)
  Receive Date: 20241220
  Receipt Date: 20250228
  Transmission Date: 20250408
  Serious: Yes (Hospitalization)
  Sender: SANDOZ
  Company Number: GB-SANDOZ-SDZ2024GB097833

PATIENT
  Sex: Male

DRUGS (1)
  1. OMNITROPE [Suspect]
     Active Substance: SOMATROPIN
     Indication: Hyperpituitarism
     Dosage: 1.9 MG, DAILY
     Route: 058

REACTIONS (3)
  - Gait disturbance [Recovering/Resolving]
  - Pain in extremity [Unknown]
  - Arthralgia [Unknown]

NARRATIVE: CASE EVENT DATE: 20240101
